FAERS Safety Report 24899573 (Version 1)
Quarter: 2025Q1

REPORT INFORMATION
  Report Type: Spontaneous
  Country: IT (occurrence: IT)
  Receive Date: 20250129
  Receipt Date: 20250129
  Transmission Date: 20250409
  Serious: Yes (Hospitalization)
  Sender: PFIZER
  Company Number: None

PATIENT
  Age: 95 Year
  Sex: Male

DRUGS (6)
  1. TAVOR (LORAZEPAM) [Interacting]
     Active Substance: LORAZEPAM
     Indication: Anxiety
     Dosage: 1 MG, 1X/DAY
     Route: 048
     Dates: start: 2021
  2. RIVOTRIL [Interacting]
     Active Substance: CLONAZEPAM
     Indication: Anxiety
     Dosage: 0.5 MG, 1X/DAY
     Route: 048
     Dates: start: 2021, end: 20250119
  3. LACIDIPINE [Concomitant]
     Active Substance: LACIDIPINE
     Indication: Hypertension
     Route: 048
  4. BISOPROLOL FUMARATE [Concomitant]
     Active Substance: BISOPROLOL FUMARATE
     Indication: Hypertension
     Dosage: 1.25 MG, 1X/DAY
     Route: 048
  5. BETAHISTINE HYDROCHLORIDE [Concomitant]
     Active Substance: BETAHISTINE HYDROCHLORIDE
     Indication: Vertigo
     Dosage: 16 MG, 1X/DAY
     Route: 048
  6. CANDESARTAN [Concomitant]
     Active Substance: CANDESARTAN
     Indication: Hypertension
     Dosage: 16 MG, 1X/DAY
     Route: 048

REACTIONS (3)
  - Fall [Recovered/Resolved]
  - Craniocerebral injury [Recovering/Resolving]
  - Drug interaction [Recovered/Resolved]

NARRATIVE: CASE EVENT DATE: 20250110
